FAERS Safety Report 4778743-X (Version None)
Quarter: 2005Q3

REPORT INFORMATION
  Report Type: 
  Country: None (occurrence: None)
  Receive Date: 20050926
  Receipt Date: 20050503
  Transmission Date: 20060218
  Serious: Yes (Death, Other)
  Sender: FDA-Public Use
  Company Number: CH-BRISTOL-MYERS SQUIBB COMPANY-12958450

PATIENT
  Age: 59 Year
  Sex: Male

DRUGS (1)
  1. APROVEL [Suspect]
     Indication: HYPERTENSION
     Dosage: THERAPY INTERRUPTED A FEW DAYS AFTER INITIATION BECAUSE OF CANCER
     Route: 048
     Dates: start: 20040420

REACTIONS (1)
  - NEOPLASM MALIGNANT [None]
